FAERS Safety Report 8575182-0 (Version None)
Quarter: 2012Q3

REPORT INFORMATION
  Report Type: 
  Country: None (occurrence: None)
  Receive Date: 20120807
  Receipt Date: 20120725
  Transmission Date: 20120928
  Serious: Yes (Hospitalization)
  Sender: FDA-Public Use
  Company Number: SI-ELI_LILLY_AND_COMPANY-SI201207008308

PATIENT
  Age: 36 Year
  Sex: Male

DRUGS (5)
  1. AKINETON [Concomitant]
     Dosage: 4 MG, UNK
  2. OLANZAPINE [Suspect]
     Indication: SCHIZOPHRENIA
     Dosage: 210 MG, 2/W
     Dates: start: 20120712, end: 20120701
  3. SERTRALINE HYDROCHLORIDE [Concomitant]
     Dosage: 200 MG, BID
  4. FLUPHENAZINE HCL [Concomitant]
     Dosage: 2.5 MG, BID
  5. LORAZEPAM [Concomitant]
     Dosage: 1.5 MG, BID

REACTIONS (4)
  - DYSPNOEA [None]
  - DYSPHAGIA [None]
  - MOVEMENT DISORDER [None]
  - HYPOTENSION [None]
